FAERS Safety Report 8621576-4 (Version None)
Quarter: 2012Q3

REPORT INFORMATION
  Report Type: 
  Country: None (occurrence: None)
  Receive Date: 20120820
  Receipt Date: 20120820
  Transmission Date: 20120928
  Serious: Yes (Other)
  Sender: FDA-Public Use
  Company Number: None

PATIENT

DRUGS (4)
  1. ESCITALOPRAM [Suspect]
     Indication: DEPRESSION
     Dosage: 10 MG QD PO 5 MG QD PO
     Route: 048
     Dates: start: 20120512, end: 20120815
  2. ESCITALOPRAM [Suspect]
     Indication: PANIC DISORDER WITHOUT AGORAPHOBIA
     Dosage: 10 MG QD PO 5 MG QD PO
     Route: 048
     Dates: start: 20120512, end: 20120815
  3. ESCITALOPRAM [Suspect]
     Indication: DEPRESSION
     Dosage: 10 MG QD PO 5 MG QD PO
     Route: 048
     Dates: start: 20120710, end: 20120815
  4. ESCITALOPRAM [Suspect]
     Indication: PANIC DISORDER WITHOUT AGORAPHOBIA
     Dosage: 10 MG QD PO 5 MG QD PO
     Route: 048
     Dates: start: 20120710, end: 20120815

REACTIONS (2)
  - ELECTROCARDIOGRAM QT PROLONGED [None]
  - TINNITUS [None]
